FAERS Safety Report 22217317 (Version 2)
Quarter: 2023Q2

REPORT INFORMATION
  Report Type: Spontaneous
  Country: GB (occurrence: GB)
  Receive Date: 20230417
  Receipt Date: 20230504
  Transmission Date: 20230722
  Serious: Yes (Hospitalization)
  Sender: FDA-Public Use
  Company Number: GB-MYLANLABS-2023M1039408

PATIENT
  Age: 51 Year
  Sex: Female

DRUGS (2)
  1. CLOZARIL [Suspect]
     Active Substance: CLOZAPINE
     Indication: Schizophrenia
     Dosage: 150 MILLIGRAM, QD (100MG IN MORNING AND 50 MG NIGHT)
     Route: 048
     Dates: start: 20031202
  2. CLOZARIL [Suspect]
     Active Substance: CLOZAPINE
     Dosage: 1750 MILLIGRAM
     Route: 048
     Dates: start: 20230407

REACTIONS (2)
  - Overdose [Recovering/Resolving]
  - Therapy interrupted [Recovering/Resolving]

NARRATIVE: CASE EVENT DATE: 20230407
